FAERS Safety Report 6233954-1 (Version None)
Quarter: 2009Q2

REPORT INFORMATION
  Report Type: 
  Country: None (occurrence: None)
  Receive Date: 20090618
  Receipt Date: 20090608
  Transmission Date: 20091009
  Serious: Yes (Other)
  Sender: FDA-Public Use
  Company Number: JP-ALLERGAN-0908178US

PATIENT
  Age: 5 Year
  Sex: Female

DRUGS (1)
  1. ALESION SYRUP [Suspect]
     Indication: URTICARIA
     Dosage: 0.8 G, QD
     Route: 048
     Dates: start: 20090608, end: 20090608

REACTIONS (1)
  - SHOCK [None]
